FAERS Safety Report 4286117-3 (Version None)
Quarter: 2004Q1

REPORT INFORMATION
  Report Type: 
  Country: None (occurrence: None)
  Receive Date: 20040204
  Receipt Date: 20040204
  Transmission Date: 20041129
  Serious: No
  Sender: FDA-Public Use
  Company Number: None

PATIENT
  Sex: Male
  Weight: 83.9154 kg

DRUGS (2)
  1. TIMOLOL GFS 0.5% FALCON [Suspect]
     Indication: GLAUCOMA
     Dosage: 1 DROP BOTH EYES EVERY MORNING
     Route: 047
     Dates: start: 20040102, end: 20040123
  2. LIPITOR [Concomitant]

REACTIONS (2)
  - CORNEAL EROSION [None]
  - KERATOCONJUNCTIVITIS SICCA [None]
